FAERS Safety Report 23951355 (Version 1)
Quarter: 2024Q2

REPORT INFORMATION
  Report Type: Report from Study
  Country: US (occurrence: US)
  Receive Date: 20240607
  Receipt Date: 20240607
  Transmission Date: 20240716
  Serious: Yes (Other)
  Sender: FDA-Public Use
  Company Number: US-ABBVIE-5786165

PATIENT
  Age: 24 Year
  Sex: Female

DRUGS (1)
  1. SKYRIZI [Suspect]
     Active Substance: RISANKIZUMAB-RZAA
     Indication: Crohn^s disease
     Dosage: MAINTENANCE DOSING
     Route: 058
     Dates: start: 202312

REACTIONS (5)
  - Small intestinal obstruction [Unknown]
  - Drug ineffective [Unknown]
  - Nausea [Unknown]
  - Fistula of small intestine [Unknown]
  - Anal fistula [Unknown]

NARRATIVE: CASE EVENT DATE: 20240101
